FAERS Safety Report 8807396 (Version 1)
Quarter: 2012Q4

REPORT INFORMATION
  Report Type: 
  Country: US (occurrence: US)
  Receive Date: 20120925
  Receipt Date: 20120925
  Transmission Date: 20130627
  Serious: No
  Sender: FDA-Public Use
  Company Number: US-MYLANLABS-2012S1001043

PATIENT
  Age: 60 Year
  Sex: Male

DRUGS (3)
  1. NITROGLYCERIN TRANSDERMAL SYSTEM [Suspect]
     Indication: MYOCARDIAL INFARCTION
     Dosage: Qday
     Route: 062
  2. INSULIN [Concomitant]
     Indication: DIABETES MELLITUS
  3. ORAL ANTIDIABETICS [Concomitant]
     Indication: DIABETES MELLITUS

REACTIONS (2)
  - Burning sensation [Not Recovered/Not Resolved]
  - Rash [Not Recovered/Not Resolved]
